FAERS Safety Report 10211194 (Version 1)
Quarter: 2014Q2

REPORT INFORMATION
  Report Type: Spontaneous
  Country: US (occurrence: None)
  Receive Date: 20140528
  Receipt Date: 20140528
  Transmission Date: 20141212
  Serious: Yes (Other)
  Sender: FDA-Public Use
  Company Number: SYM-2013-06785

PATIENT
  Age: 37 Year
  Sex: Female
  Weight: 47.63 kg

DRUGS (2)
  1. APLENZIN (BUPROPION HYDROBROMIDE) (BUPROPION HYDROBROMIDE) [Suspect]
     Indication: DEPRESSION
     Dates: start: 20130710, end: 20130710
  2. ARMOUR THYROID (THYROID) [Concomitant]

REACTIONS (2)
  - Urticaria [None]
  - Throat tightness [None]
